FAERS Safety Report 7374512-5 (Version None)
Quarter: 2011Q1

REPORT INFORMATION
  Report Type: 
  Country: None (occurrence: None)
  Receive Date: 20110325
  Receipt Date: 20100429
  Transmission Date: 20110831
  Serious: No
  Sender: FDA-Public Use
  Company Number: US-MYLANLABS-2009S1018434

PATIENT
  Sex: Female

DRUGS (1)
  1. FENTANYL-100 [Suspect]
     Indication: BACK PAIN
     Dosage: Q3D
     Route: 062
     Dates: start: 20091003, end: 20091006

REACTIONS (4)
  - ARTHRALGIA [None]
  - OROPHARYNGEAL PAIN [None]
  - ABASIA [None]
  - THERAPY NAIVE [None]
